FAERS Safety Report 20031702 (Version 4)
Quarter: 2021Q4

REPORT INFORMATION
  Report Type: Report from Study
  Country: US (occurrence: US)
  Receive Date: 20211103
  Receipt Date: 20211214
  Transmission Date: 20220303
  Serious: Yes (Hospitalization)
  Sender: FDA-Public Use
  Company Number: US-ABBVIE-20K-163-3256875-00

PATIENT
  Age: 72 Year
  Sex: Male
  Weight: 76 kg

DRUGS (22)
  1. IMBRUVICA [Suspect]
     Active Substance: IBRUTINIB
     Indication: Chronic lymphocytic leukaemia
     Route: 048
     Dates: start: 20180509, end: 20191002
  2. SPIRONOLACTONE [Concomitant]
     Active Substance: SPIRONOLACTONE
     Indication: Hypertension
     Route: 048
     Dates: start: 20181211
  3. ZOFRAN [Concomitant]
     Active Substance: ONDANSETRON HYDROCHLORIDE
     Indication: Nausea
     Route: 048
     Dates: start: 20181211
  4. ZOFRAN [Concomitant]
     Active Substance: ONDANSETRON HYDROCHLORIDE
     Dosage: PRN
     Route: 048
     Dates: start: 20181211
  5. ASPIRIN [Concomitant]
     Active Substance: ASPIRIN
     Indication: Cardiac disorder
     Route: 048
     Dates: start: 20181211
  6. TAMSULOSIN [Concomitant]
     Active Substance: TAMSULOSIN
     Indication: Benign prostatic hyperplasia
     Route: 048
     Dates: start: 20191010
  7. ALPRAZOLAM [Concomitant]
     Active Substance: ALPRAZOLAM
     Indication: Anxiety
     Route: 048
     Dates: start: 20191010
  8. ATORVASTATIN [Concomitant]
     Active Substance: ATORVASTATIN
     Indication: Hyperlipidaemia
     Route: 048
     Dates: start: 20191010
  9. DIVON [Concomitant]
     Indication: Hypertension
     Route: 048
     Dates: start: 20191010
  10. METOPROLOL TARTRATE [Concomitant]
     Active Substance: METOPROLOL TARTRATE
     Indication: Hypertension
     Route: 048
     Dates: start: 20191010
  11. PROAIR HFA [Concomitant]
     Active Substance: ALBUTEROL SULFATE
     Indication: Product used for unknown indication
     Dosage: PRN
     Route: 048
     Dates: start: 20191010
  12. VALSARTAN [Concomitant]
     Active Substance: VALSARTAN
     Indication: Hypertension
     Route: 048
     Dates: start: 20191010
  13. BRILINTA [Concomitant]
     Active Substance: TICAGRELOR
     Indication: Coronary artery disease
     Route: 048
     Dates: start: 20191010, end: 20191113
  14. ALLOPURINOL [Concomitant]
     Active Substance: ALLOPURINOL
     Indication: Chronic lymphocytic leukaemia
     Route: 048
     Dates: start: 20191028, end: 20191113
  15. VENETOCLAX [Concomitant]
     Active Substance: VENETOCLAX
     Indication: Chronic lymphocytic leukaemia
     Route: 048
     Dates: start: 20191103, end: 20191106
  16. TOPROL XL [Concomitant]
     Active Substance: METOPROLOL SUCCINATE
     Indication: Hypertension
     Route: 048
     Dates: start: 20181211, end: 20191106
  17. NORVASC [Concomitant]
     Active Substance: AMLODIPINE BESYLATE
     Indication: Hypertension
     Route: 048
     Dates: start: 20180426, end: 20191010
  18. VITAMIN D3 [Concomitant]
     Active Substance: CHOLECALCIFEROL
     Indication: Product used for unknown indication
     Dosage: 2000 UNITS
     Route: 048
     Dates: start: 20180426, end: 20191010
  19. VITAMIN D3 [Concomitant]
     Active Substance: CHOLECALCIFEROL
     Route: 048
     Dates: start: 20180426, end: 20191010
  20. PROBIOTICS NOS [Concomitant]
     Active Substance: PROBIOTICS NOS
     Indication: Product used for unknown indication
     Dates: start: 20170426, end: 20191010
  21. ONDANSETRON [Concomitant]
     Active Substance: ONDANSETRON
     Indication: Nausea
     Dates: start: 20191009, end: 20191106
  22. ONDANSETRON [Concomitant]
     Active Substance: ONDANSETRON
     Indication: Vomiting

REACTIONS (5)
  - Coronary artery disease [Recovered/Resolved with Sequelae]
  - Angina pectoris [Recovered/Resolved with Sequelae]
  - Angina unstable [Recovered/Resolved with Sequelae]
  - Hypersensitivity [Recovered/Resolved]
  - Coronary artery disease [Recovered/Resolved with Sequelae]

NARRATIVE: CASE EVENT DATE: 20191002
